FAERS Safety Report 9624630 (Version 2)
Quarter: 2013Q4

REPORT INFORMATION
  Report Type: Spontaneous
  Country: US (occurrence: US)
  Receive Date: 20131015
  Receipt Date: 20131114
  Transmission Date: 20140711
  Serious: Yes (Other)
  Sender: FDA-Public Use
  Company Number: US-PFIZER INC-2013295086

PATIENT
  Age: 50 Year
  Sex: Male
  Weight: 57.6 kg

DRUGS (10)
  1. NEURONTIN [Suspect]
     Indication: NEURALGIA
     Dosage: 600 MG, 2X/DAY
     Dates: start: 2013, end: 201310
  2. NEURONTIN [Suspect]
     Indication: TOOTHACHE
  3. ACETAMINOPHEN W/HYDROCODONE BITARTRATE [Concomitant]
     Dosage: HYDROCODONE BITARTRATE(7.5MG)/ ACETAMINOPHEN(325MG), 3X/DAY
  4. KLONOPIN [Concomitant]
     Dosage: 1 MG, 2X/DAY
  5. ENALAPRIL MALEATE [Concomitant]
     Dosage: 2.5 MG, DAILY
  6. ALENDRONATE [Concomitant]
     Dosage: 70 MG, WEEKLY
  7. CYMBALTA [Concomitant]
     Dosage: 60 MG, DAILY
  8. TOPROL XL [Concomitant]
     Dosage: 50 MG, DAILY
  9. NEXIUM [Concomitant]
     Dosage: 40 MG, DAILY
  10. CIALIS [Concomitant]
     Dosage: 5 MG, DAILY

REACTIONS (3)
  - Back disorder [Unknown]
  - Back pain [Unknown]
  - Drug ineffective [Unknown]
